FAERS Safety Report 22526642 (Version 1)
Quarter: 2023Q2

REPORT INFORMATION
  Report Type: Report from Study
  Country: IT (occurrence: IT)
  Receive Date: 20230606
  Receipt Date: 20230606
  Transmission Date: 20230722
  Serious: Yes (Other)
  Sender: FDA-Public Use
  Company Number: IT-MYLANLABS-2023M1058760

PATIENT
  Age: 43 Year
  Sex: Female

DRUGS (5)
  1. PACLITAXEL [Suspect]
     Active Substance: PACLITAXEL
     Indication: Triple negative breast cancer
     Dosage: 130 MILLIGRAM, QW
     Route: 042
     Dates: start: 20230127, end: 20230411
  2. KEYTRUDA [Suspect]
     Active Substance: PEMBROLIZUMAB
     Indication: Triple negative breast cancer
     Dosage: 200 MILLIGRAM, Q3W
     Route: 042
     Dates: start: 20230127, end: 20230404
  3. KEYTRUDA [Suspect]
     Active Substance: PEMBROLIZUMAB
     Dosage: UNK, Q3W
     Route: 065
     Dates: start: 20230405
  4. CARBOPLATIN [Suspect]
     Active Substance: CARBOPLATIN
     Indication: Triple negative breast cancer
     Dosage: 280 MILLIGRAM, QW
     Route: 042
     Dates: start: 20230127, end: 20230411
  5. Decapeptyl [Concomitant]
     Indication: Prophylaxis
     Dosage: 3.75 MILLIGRAM
     Route: 030
     Dates: start: 20230107

REACTIONS (2)
  - Neutropenia [Unknown]
  - Inappropriate schedule of product administration [Unknown]

NARRATIVE: CASE EVENT DATE: 20230424
